FAERS Safety Report 15893597 (Version 7)
Quarter: 2019Q4

REPORT INFORMATION
  Report Type: Report from Study
  Country: US (occurrence: US)
  Receive Date: 20190131
  Receipt Date: 20191118
  Transmission Date: 20200122
  Serious: Yes (Hospitalization, Other)
  Sender: FDA-Public Use
  Company Number: US-EMD SERONO-9068178

PATIENT
  Sex: Female

DRUGS (3)
  1. REBIF [Suspect]
     Active Substance: INTERFERON BETA-1A
     Dosage: REBIF PREFILLED SYRINGE
     Route: 058
     Dates: start: 2019, end: 2019
  2. REBIF [Suspect]
     Active Substance: INTERFERON BETA-1A
     Indication: MULTIPLE SCLEROSIS
     Route: 058
     Dates: start: 20190108, end: 2019
  3. REBIF [Suspect]
     Active Substance: INTERFERON BETA-1A
     Dosage: REBIF PREFILLED SYRINGE
     Route: 058
     Dates: start: 2019, end: 20191030

REACTIONS (7)
  - Sepsis [Unknown]
  - Abdominal pain [Unknown]
  - Weight decreased [Unknown]
  - Adverse drug reaction [Unknown]
  - Urinary tract infection [Recovering/Resolving]
  - Nephrolithiasis [Unknown]
  - Colitis [Unknown]

NARRATIVE: CASE EVENT DATE: 2019
